FAERS Safety Report 9150113 (Version 2)
Quarter: 2013Q2

REPORT INFORMATION
  Report Type: Spontaneous
  Country: US (occurrence: US)
  Receive Date: 20130308
  Receipt Date: 20130516
  Transmission Date: 20140414
  Serious: No
  Sender: FDA-Public Use
  Company Number: US-VERTEX PHARMACEUTICALS INC.-2013-003196

PATIENT
  Sex: Male

DRUGS (4)
  1. KALYDECO [Suspect]
     Indication: CYSTIC FIBROSIS
     Dosage: UNK
     Dates: start: 201208
  2. KEPPRA [Concomitant]
     Indication: CONVULSION
  3. LEVETIRACETAM [Concomitant]
  4. LAMOTRIGINE [Concomitant]

REACTIONS (4)
  - Depression [Unknown]
  - Anxiety [Unknown]
  - Hostility [Unknown]
  - Headache [Unknown]
